FAERS Safety Report 19050903 (Version 1)
Quarter: 2021Q1

REPORT INFORMATION
  Report Type: Spontaneous
  Country: CN (occurrence: CN)
  Receive Date: 20210323
  Receipt Date: 20210323
  Transmission Date: 20210420
  Serious: Yes (Life-Threatening, Hospitalization)
  Sender: FDA-Public Use
  Company Number: CN-BAXTER-2021BAX005309

PATIENT
  Age: 40 Year
  Sex: Female
  Weight: 55 kg

DRUGS (22)
  1. FLUOROURACIL. [Suspect]
     Active Substance: FLUOROURACIL
     Dosage: DOSE RE?INTRODUCED, 0.9% SODIUM CHLORIDE INJECTION + FLUOROURACIL INJECTION
     Route: 041
     Dates: start: 202103
  2. 0.9% SODIUM CHLORIDE INJECTION [Suspect]
     Active Substance: SODIUM CHLORIDE
     Dosage: DEXAMETHASONE SODIUM PHOSPHATE 15 MG + PALONOSETRON HYDROCHLORIDE 0.25 MG FOLLOWED BY 0.9% SODIUM CH
     Route: 041
     Dates: start: 20210224, end: 20210224
  3. 0.9% SODIUM CHLORIDE INJECTION [Suspect]
     Active Substance: SODIUM CHLORIDE
     Dosage: DOSE RE?INTRODUCED, 0.9% SODIUM CHLORIDE INJECTION + FLUOROURACIL INJECTION
     Route: 041
     Dates: start: 202103
  4. ENDOXAN [Suspect]
     Active Substance: CYCLOPHOSPHAMIDE
     Indication: BREAST CANCER METASTATIC
     Dosage: 0.9% SODIUM CHLORIDE 100 ML + CYCLOPHOSPHAMIDE 0.83 G; 30 MINUTES?FIRST CYCLE OF FAC REGIMEN, Q3W
     Route: 041
     Dates: start: 20210224, end: 20210224
  5. STERILIZED WATER [Suspect]
     Active Substance: WATER
     Indication: MEDICATION DILUTION
     Dosage: STERILE WATER FOR INJECTION40 ML + DOXORUBICIN HYDROCHLORIDE80 MG; 15 MINUTES?FIRST CYCLE OF FAC REG
     Route: 041
     Dates: start: 20210224, end: 20210224
  6. FAMOTIDINE. [Suspect]
     Active Substance: FAMOTIDINE
     Dosage: FORM: TABLET?DOSE RE?INTRODUCED
     Route: 048
     Dates: start: 202103
  7. ENDOXAN [Suspect]
     Active Substance: CYCLOPHOSPHAMIDE
     Dosage: DOSE RE?INTRODUCED, 0.9% SODIUM CHLORIDE INJECTION + CYCLOPHOSPHAMIDE FOR INJECTION, Q3W
     Route: 041
     Dates: start: 202103
  8. 0.9% SODIUM CHLORIDE INJECTION [Suspect]
     Active Substance: SODIUM CHLORIDE
     Dosage: DOSE RE?INTRODUCED, DEXAMETHASONE SODIUM PHOSPHATE + PALONOSETRON HYDROCHLORIDE,FOLLOWED BY 0.9% SOD
     Route: 041
     Dates: start: 202103
  9. DOXORUBICIN HYDROCHLORIDE. [Suspect]
     Active Substance: DOXORUBICIN HYDROCHLORIDE
     Dosage: DOSE RE?INTRODUCED, STERILE WATER FOR INJECTION  + DOXORUBICIN HYDROCHLORIDE FOR INJECTION; Q3W
     Route: 041
     Dates: start: 202103
  10. PALONOSETRON HYDROCHLORIDE. [Suspect]
     Active Substance: PALONOSETRON HYDROCHLORIDE
     Dosage: DOSE RE?INTRODUCED, DEXAMETHASONE SODIUM PHOSPHATE INJECTION + PALONOSETRON HYDROCHLORIDE INJECTION
     Route: 041
     Dates: start: 202103
  11. 0.9% SODIUM CHLORIDE INJECTION [Suspect]
     Active Substance: SODIUM CHLORIDE
     Indication: IRRIGATION THERAPY
     Dosage: 0.9% SODIUM CHLORIDE 100 ML + CYCLOPHOSPHAMIDE 0.83 G; 30 MINUTES?FIRST CYCLE OF FAC REGIMEN, Q3W
     Route: 041
     Dates: start: 20210224, end: 20210224
  12. DOXORUBICIN HYDROCHLORIDE. [Suspect]
     Active Substance: DOXORUBICIN HYDROCHLORIDE
     Indication: BREAST CANCER METASTATIC
     Dosage: STERILE WATER FOR INJECTION 40 ML + DOXORUBICIN HYDROCHLORIDE 80 MG; 15 MINUTES?FIRST CYCLE OF FAC R
     Route: 041
     Dates: start: 20210224, end: 20210224
  13. STERILIZED WATER [Suspect]
     Active Substance: WATER
     Dosage: DOSE RE?INTRODUCED, STERILE WATER FOR INJECTION  + DOXORUBICIN HYDROCHLORIDE FOR INJECTION
     Route: 041
     Dates: start: 202103
  14. PALONOSETRON HYDROCHLORIDE. [Suspect]
     Active Substance: PALONOSETRON HYDROCHLORIDE
     Indication: PROPHYLAXIS OF NAUSEA AND VOMITING
     Dosage: DEXAMETHASONE SODIUM PHOSPHATE 15 MG + PALONOSETRON HYDROCHLORIDE 0.25 MG, FOLLOWED BY 0.9% SODIUM C
     Route: 041
     Dates: start: 20210224, end: 20210224
  15. 0.9% SODIUM CHLORIDE INJECTION [Suspect]
     Active Substance: SODIUM CHLORIDE
     Indication: MEDICATION DILUTION
     Dosage: 0.9% SODIUM CHLORIDE 100 ML + FLUOROURACIL 830 MG, 30 MINUTES?FIRST CYCLE OF FAC REGIMEN, Q3W.
     Route: 041
     Dates: start: 20210224, end: 20210224
  16. DEXAMETHASONE SODIUM PHOSPHATE. [Suspect]
     Active Substance: DEXAMETHASONE SODIUM PHOSPHATE
     Indication: PROPHYLAXIS OF NAUSEA AND VOMITING
     Dosage: DEXAMETHASONE SODIUM PHOSPHATE INJECTION 15 MG + PALONOSETRON HYDROCHLORIDE INJECTION 0.25 MG FOLLOW
     Route: 041
     Dates: start: 20210224, end: 20210224
  17. DEXAMETHASONE ACETATE [Suspect]
     Active Substance: DEXAMETHASONE ACETATE
     Indication: PROPHYLAXIS OF NAUSEA AND VOMITING
     Dosage: FORM: TABLET
     Route: 048
     Dates: start: 20210224, end: 20210226
  18. 0.9% SODIUM CHLORIDE INJECTION [Suspect]
     Active Substance: SODIUM CHLORIDE
     Dosage: DOSE RE?INTRODUCED, 0.9% SODIUM CHLORIDE INJECTION  + CYCLOPHOSPHAMIDE FOR INJECTION
     Route: 041
     Dates: start: 202103
  19. FLUOROURACIL. [Suspect]
     Active Substance: FLUOROURACIL
     Indication: BREAST CANCER METASTATIC
     Dosage: 0.9% SODIUM CHLORIDE 100 ML + FLUOROURACIL 830 MG; 30 MINUTES?FIRST CYCLE OF FAC REGIMEN Q3W
     Route: 041
     Dates: start: 20210224, end: 20210224
  20. DEXAMETHASONE SODIUM PHOSPHATE. [Suspect]
     Active Substance: DEXAMETHASONE SODIUM PHOSPHATE
     Dosage: DOSE RE?INTRODUCED, DEXAMETHASONE SODIUM PHOSPHATE INJECTION + PALONOSETRON HYDROCHLORIDE INJECTION
     Route: 041
     Dates: start: 202103
  21. FAMOTIDINE. [Suspect]
     Active Substance: FAMOTIDINE
     Indication: PROPHYLAXIS OF NAUSEA AND VOMITING
     Dosage: FORM: TABLET
     Route: 048
     Dates: start: 20210224, end: 20210226
  22. DEXAMETHASONE ACETATE [Suspect]
     Active Substance: DEXAMETHASONE ACETATE
     Dosage: DOSE RE?INTRODUCED, DEXAMETHASONE ACETATE TABLETS
     Route: 048
     Dates: start: 202103

REACTIONS (7)
  - Decreased appetite [Recovering/Resolving]
  - Myelosuppression [Unknown]
  - Asthenia [Recovering/Resolving]
  - Mouth ulceration [Recovering/Resolving]
  - Back pain [Recovering/Resolving]
  - Leukopenia [Recovering/Resolving]
  - Neutrophil count decreased [Recovering/Resolving]

NARRATIVE: CASE EVENT DATE: 20210305
